FAERS Safety Report 24235160 (Version 1)
Quarter: 2024Q3

REPORT INFORMATION
  Report Type: Spontaneous
  Country: US (occurrence: US)
  Receive Date: 20240821
  Receipt Date: 20240821
  Transmission Date: 20241017
  Serious: No
  Sender: Harrow Health
  Company Number: US-IMP-2024000437

PATIENT
  Age: 69 Year
  Sex: Male

DRUGS (1)
  1. POLYVINYL ALCOHOL\POVIDONE [Suspect]
     Active Substance: POLYVINYL ALCOHOL\POVIDONE
     Indication: Dry eye
     Route: 065
     Dates: start: 2014, end: 202406

REACTIONS (2)
  - Product dose omission issue [Unknown]
  - Product use issue [Unknown]

NARRATIVE: CASE EVENT DATE: 20240601
